FAERS Safety Report 16094183 (Version 3)
Quarter: 2019Q2

REPORT INFORMATION
  Report Type: Report from Study
  Country: CZ (occurrence: CZ)
  Receive Date: 20190320
  Receipt Date: 20190420
  Transmission Date: 20190711
  Serious: Yes (Death, Hospitalization)
  Sender: FDA-Public Use
  Company Number: CZ-CELLTRION INC.-2019CZ019257

PATIENT

DRUGS (10)
  1. CONTROLOC [Concomitant]
     Active Substance: PANTOPRAZOLE SODIUM
     Dosage: 40MG TBL. 1-0-0
  2. REMSIMA [Suspect]
     Active Substance: INFLIXIMAB
     Indication: COLITIS ULCERATIVE
     Dosage: 5 MG/KG (IN WEEKS 0, 1, 5.)
     Dates: start: 20181206
  3. AZATHIOPRIN [Concomitant]
     Active Substance: AZATHIOPRINE
     Dosage: BRALA TYDEN (10.-17.1.) - NETOLEROVALA.
  4. KALIUM CHLORATUM [Concomitant]
     Active Substance: POTASSIUM CHLORIDE
     Dosage: 0,5MG TBL. 1-0-0
  5. SALOFALK [MESALAZINE] [Concomitant]
     Active Substance: MESALAMINE
     Dosage: UNK, KLYSMA
  6. PREDNISON [Concomitant]
     Active Substance: PREDNISONE
     Dosage: 20MG TBL. 1,5-0-0
  7. PENTASA [Concomitant]
     Active Substance: MESALAMINE
     Dosage: SACHET 2G 2-0-0
  8. CALTRATE [Concomitant]
     Active Substance: CALCIUM CARBONATE
     Dosage: 600/400 TBL. 1-0-0
  9. REMSIMA [Suspect]
     Active Substance: INFLIXIMAB
     Dosage: 5 MG/KG (IN WEEKS 0, 1, 5.)
     Dates: start: 20181213
  10. REMSIMA [Suspect]
     Active Substance: INFLIXIMAB
     Dosage: 5 MG/KG (IN WEEKS 0, 1, 5.)
     Dates: start: 20190110

REACTIONS (5)
  - Pulmonary embolism [Fatal]
  - Diarrhoea [Unknown]
  - Product use issue [Unknown]
  - Cytomegalovirus colitis [Fatal]
  - Sepsis [Fatal]

NARRATIVE: CASE EVENT DATE: 20190209
